FAERS Safety Report 8176703-2 (Version None)
Quarter: 2012Q1

REPORT INFORMATION
  Report Type: 
  Country: None (occurrence: None)
  Receive Date: 20120301
  Receipt Date: 20120217
  Transmission Date: 20120608
  Serious: Yes (Other)
  Sender: FDA-Public Use
  Company Number: US-ELI_LILLY_AND_COMPANY-US201201008913

PATIENT
  Age: 14 Year
  Sex: Male
  Weight: 53.061 kg

DRUGS (2)
  1. STRATTERA [Suspect]
     Indication: ATTENTION DEFICIT/HYPERACTIVITY DISORDER
     Dosage: 18 MG, QD
     Route: 048
     Dates: start: 20111230, end: 20120103
  2. BENZACLIN [Concomitant]
     Indication: ACNE
     Route: 061

REACTIONS (1)
  - SUICIDAL IDEATION [None]
